FAERS Safety Report 9026052 (Version 1)
Quarter: 2012Q4

REPORT INFORMATION
  Report Type: Spontaneous
  Country: US (occurrence: None)
  Receive Date: 20121217
  Receipt Date: 20121217
  Transmission Date: 20130627
  Serious: Yes (Other)
  Sender: FDA-Public Use
  Company Number: None

PATIENT
  Age: 38 Year
  Sex: Female
  Weight: 93.44 kg

DRUGS (1)
  1. FONDAPARINUX SODIUM [Suspect]
     Indication: DVT PROPHYLAXIS
     Dates: start: 20110407, end: 20110410

REACTIONS (1)
  - No adverse event [None]
